FAERS Safety Report 6967953-9 (Version None)
Quarter: 2010Q3

REPORT INFORMATION
  Report Type: 
  Country: None (occurrence: None)
  Receive Date: 20100907
  Receipt Date: 20100831
  Transmission Date: 20110219
  Serious: Yes (Hospitalization, Other)
  Sender: FDA-Public Use
  Company Number: A0648860A

PATIENT
  Age: 73 Year
  Sex: Female
  Weight: 49.5 kg

DRUGS (10)
  1. TYKERB [Suspect]
     Indication: BREAST CANCER
     Dosage: 1250MGD PER DAY
     Route: 048
     Dates: start: 20070423
  2. XELODA [Suspect]
     Indication: BREAST CANCER
     Dosage: 500MG UNKNOWN
     Route: 048
     Dates: start: 20070423, end: 20070429
  3. NIASPAN [Concomitant]
  4. LOVASTATIN [Concomitant]
  5. ASPIRIN [Concomitant]
  6. METOCLOPRAMIDE [Concomitant]
  7. CARAFATE [Concomitant]
  8. PROTONIX [Concomitant]
  9. VITAMIN E [Concomitant]
  10. BILBERRY [Concomitant]

REACTIONS (14)
  - ASTHENIA [None]
  - CONSTIPATION [None]
  - DEHYDRATION [None]
  - DIARRHOEA [None]
  - DRY SKIN [None]
  - EPISTAXIS [None]
  - FATIGUE [None]
  - MICTURITION DISORDER [None]
  - NAUSEA [None]
  - PARAESTHESIA [None]
  - PYREXIA [None]
  - RETCHING [None]
  - VOMITING [None]
  - WEIGHT DECREASED [None]
